FAERS Safety Report 21684704 (Version 1)
Quarter: 2022Q4

REPORT INFORMATION
  Report Type: Report from Study
  Country: US (occurrence: US)
  Receive Date: 20221205
  Receipt Date: 20221205
  Transmission Date: 20230112
  Serious: No
  Sender: FDA-Public Use
  Company Number: US-ABBVIE-4192874

PATIENT
  Sex: Female

DRUGS (2)
  1. RINVOQ [Suspect]
     Active Substance: UPADACITINIB
     Indication: Rheumatoid arthritis
     Route: 048
     Dates: start: 20210120
  2. VESICARE TAB 5MG [Concomitant]
     Indication: Product used for unknown indication

REACTIONS (2)
  - Loss of personal independence in daily activities [Unknown]
  - Rheumatoid arthritis [Unknown]
